FAERS Safety Report 13358769 (Version 1)
Quarter: 2017Q1

REPORT INFORMATION
  Report Type: Spontaneous
  Country: US (occurrence: US)
  Receive Date: 20170322
  Receipt Date: 20170322
  Transmission Date: 20170429
  Serious: Yes (Other)
  Sender: FDA-Public Use
  Company Number: US-LUNDBECK-DKLU2027946

PATIENT
  Sex: Male

DRUGS (3)
  1. NORTHERA [Suspect]
     Active Substance: DROXIDOPA
     Route: 065
  2. NORTHERA [Suspect]
     Active Substance: DROXIDOPA
     Indication: PRODUCT USED FOR UNKNOWN INDICATION
     Dosage: SCHEDULE C AND TITRATING
     Route: 065
     Dates: start: 20170223
  3. NORTHERA [Suspect]
     Active Substance: DROXIDOPA
     Route: 065

REACTIONS (5)
  - Rash pruritic [Unknown]
  - Dizziness [Unknown]
  - Abscess neck [Unknown]
  - Cardiovascular disorder [Unknown]
  - Chest wall abscess [Unknown]
